FAERS Safety Report 5368581-1 (Version None)
Quarter: 2007Q2

REPORT INFORMATION
  Report Type: 
  Country: None (occurrence: None)
  Receive Date: 20070620
  Receipt Date: 20070611
  Transmission Date: 20071010
  Serious: Yes (Hospitalization, Other)
  Sender: FDA-Public Use
  Company Number: WAES 0701USA00261

PATIENT
  Age: 58 Year
  Sex: Male

DRUGS (2)
  1. PROPECIA [Suspect]
     Indication: MALE PATTERN BALDNESS
     Dosage: 1 MG/DAILY/PO
     Route: 048
     Dates: start: 19990803, end: 20000830
  2. BEXTRA [Concomitant]

REACTIONS (15)
  - ADENOCARCINOMA [None]
  - ARTERIOSCLEROSIS CORONARY ARTERY [None]
  - BACK PAIN [None]
  - CARDIAC DISORDER [None]
  - CHEST PAIN [None]
  - COMPUTERISED TOMOGRAM ABNORMAL [None]
  - CORONARY ARTERIAL STENT INSERTION [None]
  - CORONARY ARTERY OCCLUSION [None]
  - ERECTILE DYSFUNCTION [None]
  - INCONTINENCE [None]
  - NASOPHARYNGITIS [None]
  - PROSTATE CANCER [None]
  - PROSTATIC SPECIFIC ANTIGEN INCREASED [None]
  - RETRO-PUBIC PROSTATECTOMY [None]
  - TREATMENT NONCOMPLIANCE [None]
